FAERS Safety Report 13503315 (Version 8)
Quarter: 2017Q3

REPORT INFORMATION
  Report Type: Spontaneous
  Country: US (occurrence: US)
  Receive Date: 20170502
  Receipt Date: 20170929
  Transmission Date: 20171127
  Serious: Yes (Congenital Anomaly, Other)
  Sender: FDA-Public Use
  Company Number: PHEH2017US012852

PATIENT
  Sex: Female

DRUGS (2)
  1. ZOFRAN ODT [Suspect]
     Active Substance: ONDANSETRON HYDROCHLORIDE
     Indication: FOETAL EXPOSURE DURING PREGNANCY
     Dosage: UNK
     Route: 064
  2. ZOFRAN [Suspect]
     Active Substance: ONDANSETRON HYDROCHLORIDE
     Indication: FOETAL EXPOSURE DURING PREGNANCY
     Dosage: MOTHER^S DOSE: 8 MG QD, 8 MG PRN
     Route: 064

REACTIONS (28)
  - Pneumonia [Unknown]
  - Foetal exposure during pregnancy [Unknown]
  - Cough [Unknown]
  - Bronchitis [Unknown]
  - Oropharyngeal pain [Unknown]
  - Skin disorder [Unknown]
  - Rhinitis allergic [Unknown]
  - Chronic sinusitis [Unknown]
  - Nasal congestion [Unknown]
  - Arthropod bite [Unknown]
  - Hypermetropia [Unknown]
  - Pruritus [Unknown]
  - Pharyngitis [Unknown]
  - Onychomycosis [Unknown]
  - Otitis media [Unknown]
  - Enterobiasis [Unknown]
  - Pyrexia [Unknown]
  - Pulmonary artery stenosis congenital [Unknown]
  - Skeletal injury [Unknown]
  - Upper respiratory tract infection [Unknown]
  - Ocular hypertension [Unknown]
  - Conjunctivitis [Unknown]
  - Pityriasis rosea [Unknown]
  - Cardiac murmur [Unknown]
  - Asthma [Unknown]
  - Seborrhoeic dermatitis [Unknown]
  - Vulvovaginitis [Unknown]
  - Pulmonary eosinophilia [Unknown]
